FAERS Safety Report 7090912-5 (Version None)
Quarter: 2010Q4

REPORT INFORMATION
  Report Type: 
  Country: None (occurrence: None)
  Receive Date: 20101109
  Receipt Date: 20101027
  Transmission Date: 20110411
  Serious: Yes (Hospitalization)
  Sender: FDA-Public Use
  Company Number: US-ELI_LILLY_AND_COMPANY-US201010007096

PATIENT
  Sex: Female

DRUGS (7)
  1. FORTEO [Suspect]
     Indication: OSTEOPOROSIS
     Dosage: 20 UG, DAILY (1/D)
  2. OMEPRAZOLE [Concomitant]
  3. VITAMIN D [Concomitant]
     Dosage: 2000 IU, DAILY (1/D)
  4. MULTI-VITAMIN [Concomitant]
  5. PHAZYME [Concomitant]
  6. LAMICTAL [Concomitant]
  7. LITHIUM CARBONATE [Concomitant]

REACTIONS (2)
  - ANXIETY [None]
  - BIPOLAR I DISORDER [None]
